FAERS Safety Report 6484704-5 (Version None)
Quarter: 2009Q4

REPORT INFORMATION
  Report Type: 
  Country: None (occurrence: None)
  Receive Date: 20091204
  Receipt Date: 20091123
  Transmission Date: 20100525
  Serious: Yes (Hospitalization)
  Sender: FDA-Public Use
  Company Number: 8055306

PATIENT
  Age: 37 Year
  Sex: Female

DRUGS (4)
  1. KEPPRA [Suspect]
     Dosage: 250 MG 2/D
     Dates: start: 20091013, end: 20090101
  2. KEPPRA [Suspect]
     Dosage: 500 MG 2/D
     Dates: start: 20090101
  3. CONTRACEPTIVE PILL [Concomitant]
  4. FLUOXETINE [Concomitant]

REACTIONS (1)
  - STEVENS-JOHNSON SYNDROME [None]
